FAERS Safety Report 8504614 (Version 3)
Quarter: 2013Q2

REPORT INFORMATION
  Report Type: Spontaneous
  Country: US (occurrence: US)
  Receive Date: 20120411
  Receipt Date: 20130522
  Transmission Date: 20140414
  Serious: Yes (Hospitalization, Disabling, Other)
  Sender: FDA-Public Use
  Company Number: US-PFIZER INC-2012088084

PATIENT
  Age: 26 Year
  Sex: Female

DRUGS (10)
  1. GEODON [Suspect]
     Indication: ANXIETY
     Dosage: 80 MG, 1- 2X/DAY
     Dates: start: 2001
  2. GEODON [Suspect]
     Indication: DEPRESSION
     Dosage: 80 MG, 2 CAPSULES AT BEDTIME
  3. GEODON [Suspect]
     Indication: POST-TRAUMATIC STRESS DISORDER
  4. GEODON [Suspect]
     Indication: BIPOLAR DISORDER
  5. INDERAL [Concomitant]
     Dosage: UNK
  6. REMERON [Concomitant]
     Dosage: UNK
  7. XANAX [Concomitant]
     Dosage: UNK
  8. POTASSIUM [Concomitant]
     Dosage: UNK
  9. TYLENOL 3 [Concomitant]
     Dosage: UNK
  10. LASIX [Concomitant]
     Dosage: UNK

REACTIONS (1)
  - Bipolar disorder [Unknown]
